FAERS Safety Report 20136422 (Version 2)
Quarter: 2022Q1

REPORT INFORMATION
  Report Type: Spontaneous
  Country: US (occurrence: None)
  Receive Date: 20211201
  Receipt Date: 20220107
  Transmission Date: 20220423
  Serious: No
  Sender: FDA-Public Use
  Company Number: 2021A792851

PATIENT
  Age: 28078 Day
  Sex: Female
  Weight: 73.9 kg

DRUGS (1)
  1. BYDUREON BCISE [Suspect]
     Active Substance: EXENATIDE
     Indication: Glucose tolerance impaired
     Dosage: 2MG ONCE A WEEK EVERY FRIDAY
     Route: 058

REACTIONS (5)
  - Injection site pain [Unknown]
  - Product use issue [Unknown]
  - Product prescribing issue [Unknown]
  - Device leakage [Unknown]
  - Needle issue [Unknown]

NARRATIVE: CASE EVENT DATE: 20211029
